FAERS Safety Report 8996789 (Version 1)
Quarter: 2012Q4

REPORT INFORMATION
  Report Type: Spontaneous
  Country: US (occurrence: None)
  Receive Date: 20121228
  Receipt Date: 20121228
  Transmission Date: 20130627
  Serious: Yes (Other)
  Sender: FDA-Public Use
  Company Number: None

PATIENT
  Age: 64 Year
  Sex: Female
  Weight: 104.33 kg

DRUGS (1)
  1. CYMBALTA [Suspect]
     Indication: MUSCULOSKELETAL PAIN
     Dosage: 30mg + 60mg bedtime oral
     Route: 048
     Dates: start: 20120926, end: 20121021

REACTIONS (13)
  - Palpitations [None]
  - Dyspnoea [None]
  - Hypotonia [None]
  - Dizziness [None]
  - Somnolence [None]
  - Tremor [None]
  - Fatigue [None]
  - Tremor [None]
  - Coordination abnormal [None]
  - Vision blurred [None]
  - Gait disturbance [None]
  - Swelling [None]
  - Disturbance in attention [None]
